FAERS Safety Report 17968581 (Version 1)
Quarter: 2020Q3

REPORT INFORMATION
  Report Type: Report from Study
  Country: NL (occurrence: NL)
  Receive Date: 20200701
  Receipt Date: 20200701
  Transmission Date: 20201103
  Serious: Yes (Other)
  Sender: FDA-Public Use
  Company Number: NVSC2020NL179450

PATIENT
  Sex: Female

DRUGS (1)
  1. SANDOSTATIN LAR DEPOT [Suspect]
     Active Substance: OCTREOTIDE ACETATE
     Indication: NEUROENDOCRINE TUMOUR
     Dosage: UNK UNK, QMO (1.00 X PER 4 WEKEN)
     Route: 030

REACTIONS (4)
  - Terminal state [Unknown]
  - Renal impairment [Unknown]
  - Myocardial infarction [Unknown]
  - Hypophagia [Unknown]
